FAERS Safety Report 19004323 (Version 2)
Quarter: 2021Q2

REPORT INFORMATION
  Report Type: Spontaneous
  Country: BR (occurrence: BR)
  Receive Date: 20210312
  Receipt Date: 20210401
  Transmission Date: 20210717
  Serious: Yes (Other)
  Sender: FDA-Public Use
  Company Number: BR-BAYER-2021-101921

PATIENT
  Age: 35 Year
  Sex: Female

DRUGS (1)
  1. MIRENA [Suspect]
     Active Substance: LEVONORGESTREL
     Indication: CONTRACEPTION
     Dosage: 20 ?G PER DAY CONTINUOUSLY
     Route: 015
     Dates: start: 20190808

REACTIONS (5)
  - Irritability [None]
  - Emotional disorder [None]
  - Suicidal ideation [None]
  - Genital haemorrhage [Recovered/Resolved]
  - Cyst [None]

NARRATIVE: CASE EVENT DATE: 201908
